FAERS Safety Report 23242439 (Version 1)
Quarter: 2023Q4

REPORT INFORMATION
  Report Type: Spontaneous
  Country: FR (occurrence: FR)
  Receive Date: 20231129
  Receipt Date: 20231129
  Transmission Date: 20240109
  Serious: Yes (Life-Threatening, Other)
  Sender: FDA-Public Use
  Company Number: None

PATIENT
  Age: 60 Year
  Sex: Male

DRUGS (6)
  1. POLARAMINE [Suspect]
     Active Substance: DEXCHLORPHENIRAMINE MALEATE
     Indication: Allergy prophylaxis
     Dosage: 5 MG, 1 TOTAL
     Route: 042
     Dates: start: 20230926, end: 20230926
  2. POLARAMINE [Suspect]
     Active Substance: DEXCHLORPHENIRAMINE MALEATE
     Dosage: 5 MG, 1 TOTAL
     Route: 042
     Dates: start: 20231003, end: 20231003
  3. SOLU-MEDROL [Suspect]
     Active Substance: METHYLPREDNISOLONE SODIUM SUCCINATE
     Indication: Allergy prophylaxis
     Dosage: 180 MG, 1 TOTAL
     Route: 042
     Dates: start: 20230926, end: 20230926
  4. SOLU-MEDROL [Suspect]
     Active Substance: METHYLPREDNISOLONE SODIUM SUCCINATE
     Dosage: 180 MG, 1 TOTAL
     Route: 042
     Dates: start: 20231003, end: 20231003
  5. ONDANSETRON [Suspect]
     Active Substance: ONDANSETRON
     Indication: Prophylaxis of nausea and vomiting
     Dosage: 8 MG, 1 TOTAL
     Route: 042
     Dates: start: 20230926, end: 20230926
  6. ONDANSETRON [Suspect]
     Active Substance: ONDANSETRON
     Dosage: 8 MG, 1 TOTAL
     Route: 042
     Dates: start: 20231003, end: 20231003

REACTIONS (2)
  - Cardio-respiratory arrest [Recovered/Resolved]
  - Tonic clonic movements [Recovered/Resolved]

NARRATIVE: CASE EVENT DATE: 20230926
